FAERS Safety Report 12944863 (Version 7)
Quarter: 2017Q3

REPORT INFORMATION
  Report Type: Spontaneous
  Country: IT (occurrence: IT)
  Receive Date: 20161116
  Receipt Date: 20170802
  Transmission Date: 20171127
  Serious: Yes (Other)
  Sender: FDA-Public Use
  Company Number: IT-ROCHE-1854642

PATIENT
  Age: 54 Year
  Sex: Female
  Weight: 67 kg

DRUGS (3)
  1. HERCEPTIN [Suspect]
     Active Substance: TRASTUZUMAB
     Dosage: DATE OF RECENT DOSE: 19/APR/2017
     Route: 058
     Dates: start: 20160208
  2. HERCEPTIN [Suspect]
     Active Substance: TRASTUZUMAB
     Indication: BREAST CANCER
     Dosage: DATE OF RECENT DOSE: 31/OCT/2016
     Route: 058
     Dates: start: 20160509
  3. PACLITAXEL. [Suspect]
     Active Substance: PACLITAXEL
     Indication: BREAST CANCER
     Route: 042
     Dates: start: 20160509, end: 20160805

REACTIONS (8)
  - Diarrhoea [Recovering/Resolving]
  - Hyperbilirubinaemia [Recovering/Resolving]
  - Nail disorder [Recovering/Resolving]
  - Alopecia [Unknown]
  - Muscle spasms [Not Recovered/Not Resolved]
  - Rash [Recovering/Resolving]
  - Paraesthesia [Not Recovered/Not Resolved]
  - Paraesthesia [Unknown]

NARRATIVE: CASE EVENT DATE: 20160511
